FAERS Safety Report 8471431 (Version 2)
Quarter: 2012Q4

REPORT INFORMATION
  Report Type: 
  Country: BR (occurrence: BR)
  Receive Date: 20120322
  Receipt Date: 20121221
  Transmission Date: 20130627
  Serious: Yes (Death, Other)
  Sender: FDA-Public Use
  Company Number: BR-AMGEN-BRASP2012017159

PATIENT
  Age: 76 Year
  Sex: Female
  Weight: 60.5 kg

DRUGS (8)
  1. ENBREL [Suspect]
     Indication: RHEUMATOID ARTHRITIS
     Dosage: 50 mg, 1x/week
     Route: 058
     Dates: start: 201201, end: 20120303
  2. LOSARTAN [Concomitant]
     Dosage: UNK
  3. METFORMIN [Concomitant]
     Dosage: UNK
  4. PURAN T4 [Concomitant]
     Dosage: UNK
  5. HYDROCHLOROTHIAZIDE [Concomitant]
     Dosage: UNK
  6. OMEPRAZOLE [Concomitant]
     Dosage: UNK
  7. CALCIUM [Concomitant]
     Dosage: UNK
  8. GLUCOSAMINE SULFATE [Concomitant]
     Dosage: UNK

REACTIONS (5)
  - Neoplasm malignant [Fatal]
  - Pancreatic neoplasm [Unknown]
  - Bedridden [Not Recovered/Not Resolved]
  - Spinal pain [Unknown]
  - Asthenia [Not Recovered/Not Resolved]
